FAERS Safety Report 9524548 (Version 1)
Quarter: 2013Q1

REPORT INFORMATION
  Report Type: Spontaneous
  Country: US (occurrence: None)
  Receive Date: 20130313
  Receipt Date: 20130313
  Transmission Date: 20140127
  Serious: No
  Sender: FDA-Public Use
  Company Number: 1000038405

PATIENT
  Age: 38 Year
  Sex: Female

DRUGS (2)
  1. SAVELLA [Suspect]
     Dates: start: 2012, end: 2012
  2. PLAQUENIL (HYDROXYCHLOROQUINE) (HYDROXYCHLOROQUINE) [Concomitant]

REACTIONS (2)
  - Piloerection [None]
  - Nausea [None]
